FAERS Safety Report 20607543 (Version 1)
Quarter: 2022Q1

REPORT INFORMATION
  Report Type: Report from Study
  Country: FR (occurrence: FR)
  Receive Date: 20220317
  Receipt Date: 20220317
  Transmission Date: 20220423
  Serious: Yes (Hospitalization)
  Sender: FDA-Public Use
  Company Number: FR-SERVIER-S22000339

PATIENT

DRUGS (8)
  1. PEGASPARGASE [Suspect]
     Active Substance: PEGASPARGASE
     Indication: Acute lymphocytic leukaemia
     Dosage: 2400 IU ON D15, D43 (NOT ADMINISTERED)
     Route: 042
     Dates: start: 20211208, end: 20220110
  2. TN UNSPECIFIED [Concomitant]
     Indication: Acute lymphocytic leukaemia
     Dosage: 50 MG ON D1 TO D14, D29 TO D42
     Route: 048
     Dates: start: 20211124
  3. TN UNSPECIFIED [Concomitant]
     Indication: Acute lymphocytic leukaemia
     Dosage: 940 MG ON D1 AND D29
     Route: 042
     Dates: start: 20211124, end: 20211221
  4. TN UNSPECIFIED [Concomitant]
     Indication: Acute lymphocytic leukaemia
     Dosage: 12 MG ON D3 AND D31
     Route: 037
     Dates: start: 20211126, end: 20211223
  5. TN UNSPECIFIED [Concomitant]
     Indication: Acute lymphocytic leukaemia
     Dosage: 15 MG ON D3 AND D31
     Route: 037
     Dates: start: 20211126, end: 20211223
  6. TN UNSPECIFIED [Concomitant]
     Indication: Acute lymphocytic leukaemia
     Dosage: 30 MG ON D3 AND D31
     Route: 037
     Dates: start: 20211126, end: 20211223
  7. TN UNSPECIFIED [Concomitant]
     Dosage: 71 MG ON D3 TO D6, D10 TO D13, D31 TO D34, AND D38 TO D42
     Route: 042
     Dates: start: 20211126, end: 20220102
  8. TN UNSPECIFIED [Concomitant]
     Indication: Acute lymphocytic leukaemia
     Dosage: 1.4 MG ON D8; D15 NOT ADMINISTERED
     Route: 042
     Dates: start: 20211208, end: 20211215

REACTIONS (1)
  - Alpha haemolytic streptococcal infection [Recovered/Resolved]

NARRATIVE: CASE EVENT DATE: 20220105
